FAERS Safety Report 4532039-X (Version None)
Quarter: 2004Q4

REPORT INFORMATION
  Report Type: 
  Country: None (occurrence: None)
  Receive Date: 20041220
  Receipt Date: 20041110
  Transmission Date: 20050328
  Serious: Yes (Other)
  Sender: FDA-Public Use
  Company Number: TH-GLAXOSMITHKLINE-B0357627A

PATIENT
  Age: 50 Year
  Sex: Male
  Weight: 90 kg

DRUGS (6)
  1. ZEFFIX [Suspect]
     Indication: HEPATITIS B
     Dates: start: 20030501, end: 20041109
  2. HEPSERA [Suspect]
     Indication: HEPATITIS B
     Dates: start: 20040301, end: 20041109
  3. PEGASYS [Suspect]
     Indication: HEPATITIS B
     Dosage: 180MCG WEEKLY
     Dates: start: 20040903, end: 20041109
  4. GLYBURIDE [Concomitant]
     Dosage: 5MG PER DAY
     Route: 065
  5. GLUCOPHAGE [Concomitant]
     Dosage: 500MG PER DAY
     Route: 065
  6. VITAMIN E [Concomitant]
     Route: 065

REACTIONS (7)
  - CRANIAL NERVE PALSIES MULTIPLE [None]
  - DIPLOPIA [None]
  - FACIAL PALSY [None]
  - PARAESTHESIA [None]
  - TINNITUS [None]
  - TRIGEMINAL PALSY [None]
  - VIIITH NERVE LESION [None]
